FAERS Safety Report 6993470-6 (Version None)
Quarter: 2010Q3

REPORT INFORMATION
  Report Type: 
  Country: None (occurrence: None)
  Receive Date: 20100917
  Receipt Date: 20100707
  Transmission Date: 20110219
  Serious: No
  Sender: FDA-Public Use
  Company Number: US-ASTRAZENECA-2010SE31690

PATIENT
  Age: 51 Year
  Sex: Female
  Weight: 59.9 kg

DRUGS (3)
  1. SEROQUEL [Suspect]
     Indication: BIPOLAR DISORDER
     Route: 048
     Dates: end: 20100601
  2. RITALIN [Concomitant]
  3. XANAX [Concomitant]

REACTIONS (8)
  - AMNESIA [None]
  - DRUG DOSE OMISSION [None]
  - PAIN IN EXTREMITY [None]
  - PARAESTHESIA [None]
  - THYROID DISORDER [None]
  - VISUAL IMPAIRMENT [None]
  - WEIGHT DECREASED [None]
  - WITHDRAWAL SYNDROME [None]
